FAERS Safety Report 8296009-0 (Version None)
Quarter: 2012Q2

REPORT INFORMATION
  Report Type: 
  Country: None (occurrence: None)
  Receive Date: 20120418
  Receipt Date: 20120410
  Transmission Date: 20120825
  Serious: Yes (Hospitalization)
  Sender: FDA-Public Use
  Company Number: US-COVIDIEN/TYCO HEALTHCARE/MALLINCKRODT-T201201442

PATIENT
  Age: 49 Year
  Sex: Female
  Weight: 56.689 kg

DRUGS (10)
  1. CYMBALTA [Concomitant]
  2. VALTREX [Concomitant]
  3. RESTORIL [Suspect]
     Indication: INSOMNIA
     Dosage: 15 MG, QD AT HS FOR 30 DAYS
     Dates: start: 20111228, end: 20120101
  4. TYSABRI [Suspect]
     Indication: PRODUCT USED FOR UNKNOWN INDICATION
     Dosage: 300 MG/ 15 ML IV MONTHLY
     Route: 042
     Dates: start: 20111123, end: 20120101
  5. AMPYRA [Suspect]
     Indication: ASTHENIA
  6. LAMICTAL [Concomitant]
  7. PROVIGIL [Concomitant]
  8. AMPYRA [Suspect]
     Indication: GAIT DISTURBANCE
     Dosage: 10 MG, BID
     Route: 048
     Dates: start: 20111216, end: 20120101
  9. PREDNISONE TAB [Suspect]
     Indication: PRODUCT USED FOR UNKNOWN INDICATION
     Dosage: 20 MG, QD FOR 10 DAYS
     Route: 048
     Dates: start: 20111230, end: 20120101
  10. BETHANECHOL CHLORIDE [Concomitant]

REACTIONS (1)
  - PROGRESSIVE MULTIFOCAL LEUKOENCEPHALOPATHY [None]
